FAERS Safety Report 12652343 (Version 1)
Quarter: 2016Q3

REPORT INFORMATION
  Report Type: Spontaneous
  Country: IT (occurrence: IT)
  Receive Date: 20160815
  Receipt Date: 20160815
  Transmission Date: 20161109
  Serious: Yes (Other)
  Sender: FDA-Public Use
  Company Number: IT-GILEAD-2016-0227909

PATIENT
  Age: 50 Year
  Sex: Male

DRUGS (4)
  1. HARVONI [Suspect]
     Active Substance: LEDIPASVIR\SOFOSBUVIR
     Indication: HEPATITIS C
     Dosage: 1 DF, QD
     Route: 048
     Dates: start: 20151105, end: 20160420
  2. SEROQUEL [Concomitant]
     Active Substance: QUETIAPINE FUMARATE
  3. PAROXETIN                          /00830801/ [Concomitant]
     Active Substance: PAROXETINE HYDROCHLORIDE
     Dosage: 20 MG, UNK
  4. COPEGUS [Suspect]
     Active Substance: RIBAVIRIN
     Indication: HEPATITIS C
     Dosage: 1.2 G, QD
     Route: 048
     Dates: start: 20151105, end: 20160420

REACTIONS (1)
  - Hepatocellular carcinoma [Recovering/Resolving]

NARRATIVE: CASE EVENT DATE: 20160503
